FAERS Safety Report 9255958 (Version 2)
Quarter: 2013Q2

REPORT INFORMATION
  Report Type: Spontaneous
  Country: JP (occurrence: JP)
  Receive Date: 20130425
  Receipt Date: 20130530
  Transmission Date: 20140414
  Serious: Yes (Death, Hospitalization, Other)
  Sender: FDA-Public Use
  Company Number: PHHY2013JP033474

PATIENT
  Age: 69 Year
  Sex: 0
  Weight: 62 kg

DRUGS (9)
  1. ZOMETA [Suspect]
     Indication: METASTASES TO BONE
     Dosage: 4 MG, PER ADMINISTRATION
     Route: 041
  2. CARBOPLATIN SANDOZ [Suspect]
     Indication: LUNG NEOPLASM MALIGNANT
     Route: 042
  3. PACLITAXEL [Suspect]
     Indication: LUNG NEOPLASM MALIGNANT
     Dosage: 200 MG/ M2
  4. DENOSUMAB [Concomitant]
  5. DORIPENEM [Concomitant]
  6. OPIOIDS [Concomitant]
  7. OXYCODONE HYDROCHLORIDE [Concomitant]
     Dosage: 30 MG, UNK
  8. GEMCITABINE [Concomitant]
     Dosage: 1000 MG/M2, UNK
  9. FENTANYL [Concomitant]
     Dosage: 16.8 MG, UNK

REACTIONS (6)
  - Death [Fatal]
  - Back pain [Recovering/Resolving]
  - Performance status decreased [Recovering/Resolving]
  - Lung neoplasm malignant [Unknown]
  - Malignant neoplasm progression [Unknown]
  - Decreased appetite [Unknown]
